FAERS Safety Report 15334954 (Version 1)
Quarter: 2018Q3

REPORT INFORMATION
  Report Type: Spontaneous
  Country: US (occurrence: US)
  Receive Date: 20180830
  Receipt Date: 20180830
  Transmission Date: 20181010
  Serious: Yes (Other)
  Sender: FDA-Public Use
  Company Number: US-PFIZER INC-2018346179

PATIENT
  Age: 69 Year
  Sex: Male

DRUGS (3)
  1. ACETYLSALICYLIC ACID [Concomitant]
     Active Substance: ASPIRIN
     Dosage: 325 MG, UNK (GIVEN ORALLY WITHIN 15 MINUTES OF STENT DEPLOYMENT)
     Route: 048
  2. TICAGRELOR. [Interacting]
     Active Substance: TICAGRELOR
     Dosage: 180 MG, UNK (GIVEN ORALLY WITHIN 15 MINUTES OF STENT DEPLOYMENT)
     Route: 048
  3. ADENOSINE PHOSPHATE [Suspect]
     Active Substance: ADENOSINE PHOSPHATE
     Dosage: 180 UG, UNK
     Route: 022

REACTIONS (3)
  - Drug interaction [Recovered/Resolved]
  - Dyspnoea [Recovered/Resolved]
  - Bradycardia [Recovered/Resolved]
